FAERS Safety Report 9749805 (Version 1)
Quarter: 2013Q4

REPORT INFORMATION
  Report Type: Report from Study
  Country: DE (occurrence: DE)
  Receive Date: 20131212
  Receipt Date: 20131212
  Transmission Date: 20140711
  Serious: Yes (Hospitalization, Other)
  Sender: FDA-Public Use
  Company Number: DE-SA-2013SA126787

PATIENT
  Age: 78 Year
  Sex: Male
  Weight: 82 kg

DRUGS (3)
  1. MULTAQ [Suspect]
     Indication: ATRIAL FIBRILLATION
     Route: 048
     Dates: start: 20121011, end: 20130407
  2. VIT K ANTAGONISTS [Concomitant]
     Dates: start: 20110708
  3. RAMIPRIL [Concomitant]

REACTIONS (1)
  - Atrial fibrillation [Unknown]
